FAERS Safety Report 26093084 (Version 1)
Quarter: 2025Q4

REPORT INFORMATION
  Report Type: Spontaneous
  Country: US (occurrence: US)
  Receive Date: 20251126
  Receipt Date: 20251126
  Transmission Date: 20260118
  Serious: No
  Sender: SANOFI AVENTIS
  Company Number: US-SA-2025SA351428

PATIENT
  Sex: Male
  Weight: 78.84 kg

DRUGS (18)
  1. DUPIXENT [Suspect]
     Active Substance: DUPILUMAB
     Indication: Chronic sinusitis
     Dosage: 300 MG, QOW
     Route: 058
  2. DUPIXENT [Suspect]
     Active Substance: DUPILUMAB
     Indication: Chronic rhinosinusitis with nasal polyps
  3. TYLENOL ARTHRITIS PAIN [Concomitant]
     Active Substance: ACETAMINOPHEN
  4. VITAMIN C [Concomitant]
     Active Substance: ASCORBIC ACID
  5. BENZONATATE [Concomitant]
     Active Substance: BENZONATATE
  6. CHLORZOXAZONE [Concomitant]
     Active Substance: CHLORZOXAZONE
  7. LATANOPROST [Concomitant]
     Active Substance: LATANOPROST
  8. CELEBREX [Concomitant]
     Active Substance: CELECOXIB
  9. BUSPIRONE HCL [Concomitant]
     Active Substance: BUSPIRONE HYDROCHLORIDE
  10. VITAMIN D2 [Concomitant]
     Active Substance: ERGOCALCIFEROL
  11. ZOLOFT [Concomitant]
     Active Substance: SERTRALINE HYDROCHLORIDE
  12. FAMOTIDINE [Concomitant]
     Active Substance: FAMOTIDINE
  13. LYRICA [Concomitant]
     Active Substance: PREGABALIN
  14. KEPPRA [Concomitant]
     Active Substance: LEVETIRACETAM
  15. CRESTOR [Concomitant]
     Active Substance: ROSUVASTATIN CALCIUM
  16. DICLOFENAC SODIUM [Concomitant]
     Active Substance: DICLOFENAC SODIUM
  17. ASPIRIN [Concomitant]
     Active Substance: ASPIRIN
  18. Amlodipine + atorvastatin [Concomitant]

REACTIONS (3)
  - Sneezing [Unknown]
  - Product dose omission issue [Unknown]
  - Product use in unapproved indication [Unknown]
